FAERS Safety Report 20946058 (Version 21)
Quarter: 2024Q3

REPORT INFORMATION
  Report Type: Report from Study
  Country: US (occurrence: US)
  Receive Date: 20220610
  Receipt Date: 20240926
  Transmission Date: 20241017
  Serious: Yes (Hospitalization, Other)
  Sender: TAKEDA
  Company Number: US-TAKEDA-2022TUS038422

PATIENT
  Age: 43 Year
  Sex: Male

DRUGS (7)
  1. ANTIHEMOPHILIC FACTOR HUMAN [Suspect]
     Active Substance: ANTIHEMOPHILIC FACTOR HUMAN
     Indication: Prophylaxis
     Dosage: 4300 INTERNATIONAL UNIT, 2/WEEK
     Route: 042
  2. ANTIHEMOPHILIC FACTOR HUMAN [Suspect]
     Active Substance: ANTIHEMOPHILIC FACTOR HUMAN
     Dosage: 4300 INTERNATIONAL UNIT
     Route: 042
  3. ANTIHEMOPHILIC FACTOR HUMAN [Suspect]
     Active Substance: ANTIHEMOPHILIC FACTOR HUMAN
     Dosage: 3000 INTERNATIONAL UNIT
     Route: 065
  4. ANTIHEMOPHILIC FACTOR HUMAN [Suspect]
     Active Substance: ANTIHEMOPHILIC FACTOR HUMAN
     Dosage: 3450 INTERNATIONAL UNIT
     Route: 065
  5. ANTIHEMOPHILIC FACTOR HUMAN [Suspect]
     Active Substance: ANTIHEMOPHILIC FACTOR HUMAN
     Dosage: 3000 INTERNATIONAL UNIT, 2/WEEK
     Route: 065
  6. ANTIHEMOPHILIC FACTOR HUMAN [Suspect]
     Active Substance: ANTIHEMOPHILIC FACTOR HUMAN
     Dosage: 1530 INTERNATIONAL UNIT
     Route: 065
  7. ANTIHEMOPHILIC FACTOR HUMAN [Suspect]
     Active Substance: ANTIHEMOPHILIC FACTOR HUMAN
     Dosage: 2700 INTERNATIONAL UNIT
     Route: 065

REACTIONS (19)
  - Ulcer haemorrhage [Unknown]
  - Haemarthrosis [Recovered/Resolved]
  - Arthralgia [Unknown]
  - Rectal haemorrhage [Unknown]
  - Traumatic haemorrhage [Not Recovered/Not Resolved]
  - Gastric haemorrhage [Unknown]
  - Muscle haemorrhage [Recovered/Resolved]
  - Haemorrhage [Unknown]
  - Contusion [Unknown]
  - Arthropathy [Unknown]
  - Infection [Unknown]
  - White blood cell count decreased [Unknown]
  - Arthropod scratch [Unknown]
  - Fall [Unknown]
  - Abdominal pain upper [Unknown]
  - Product dose omission issue [Unknown]
  - Product use issue [Unknown]
  - Extra dose administered [Unknown]
  - Ocular hyperaemia [Unknown]

NARRATIVE: CASE EVENT DATE: 20220408
